FAERS Safety Report 22094226 (Version 1)
Quarter: 2023Q1

REPORT INFORMATION
  Report Type: Spontaneous
  Country: US (occurrence: None)
  Receive Date: 20230314
  Receipt Date: 20230314
  Transmission Date: 20230418
  Serious: Yes (Life-Threatening, Other)
  Sender: FDA-Public Use
  Company Number: None

PATIENT
  Age: 40 Year
  Sex: Female
  Weight: 61.1 kg

DRUGS (3)
  1. PACLITAXEL [Suspect]
     Active Substance: PACLITAXEL
     Indication: Breast cancer
     Dosage: 10.7 MG INTRAVENOUS DRIP
     Route: 041
     Dates: start: 20221122, end: 20221122
  2. PERTUZUMAB [Concomitant]
     Active Substance: PERTUZUMAB
     Dates: start: 20180611, end: 20221122
  3. TRASTUZUMAB [Concomitant]
     Active Substance: TRASTUZUMAB
     Dates: start: 20180611, end: 20221122

REACTIONS (4)
  - Nausea [None]
  - Dyspnoea [None]
  - Erythema [None]
  - Infusion related reaction [None]

NARRATIVE: CASE EVENT DATE: 20221122
